FAERS Safety Report 21595211 (Version 4)
Quarter: 2023Q1

REPORT INFORMATION
  Report Type: Report from Study
  Country: US (occurrence: US)
  Receive Date: 20221115
  Receipt Date: 20230318
  Transmission Date: 20230418
  Serious: Yes (Hospitalization, Other)
  Sender: FDA-Public Use
  Company Number: US-002147023-NVSC2022US252584

PATIENT
  Age: 63 Year
  Sex: Female
  Weight: 68 kg

DRUGS (6)
  1. COSENTYX [Suspect]
     Active Substance: SECUKINUMAB
     Indication: Psoriasis
     Dosage: 300 MG, QMO
     Route: 058
     Dates: start: 20151006, end: 20160706
  2. COSENTYX [Suspect]
     Active Substance: SECUKINUMAB
     Dosage: 300 MG, Q4W
     Route: 058
     Dates: start: 20191028, end: 20200529
  3. COSENTYX [Suspect]
     Active Substance: SECUKINUMAB
     Dosage: 300 MG, QMO
     Route: 058
     Dates: start: 20211201
  4. GUSELKUMAB [Concomitant]
     Active Substance: GUSELKUMAB
     Indication: Psoriasis
     Dosage: 100 MG (1 EVERY 8 WEEKS)
     Route: 065
     Dates: start: 20200316
  5. CRISABOROLE [Concomitant]
     Active Substance: CRISABOROLE
     Indication: Psoriasis
     Dosage: UNK, QD
     Route: 065
  6. FOLIC ACID [Concomitant]
     Active Substance: FOLIC ACID
     Indication: Product used for unknown indication
     Dosage: UNK
     Route: 065

REACTIONS (9)
  - Paranoia [Unknown]
  - Delusion [Unknown]
  - Pneumonia [Recovered/Resolved]
  - Hormone receptor positive breast cancer [Recovered/Resolved]
  - Diabetes mellitus [Unknown]
  - Pancreatitis [Unknown]
  - Breast cancer [Recovered/Resolved]
  - Urinary tract infection [Unknown]
  - COVID-19 [Unknown]

NARRATIVE: CASE EVENT DATE: 20160101
